FAERS Safety Report 4601842-X (Version None)
Quarter: 2005Q1

REPORT INFORMATION
  Report Type: 
  Country: None (occurrence: None)
  Receive Date: 20050131
  Receipt Date: 20041108
  Transmission Date: 20050727
  Serious: No
  Sender: FDA-Public Use
  Company Number: 200417976US

PATIENT
  Age: 23 Year
  Sex: Female

DRUGS (1)
  1. KETEK [Suspect]
     Indication: PHARYNGITIS
     Dosage: 800 MG ONCE PO
     Route: 048

REACTIONS (1)
  - RASH [None]
